FAERS Safety Report 7897878-6 (Version None)
Quarter: 2011Q4

REPORT INFORMATION
  Report Type: 
  Country: None (occurrence: None)
  Receive Date: 20111107
  Receipt Date: 20111024
  Transmission Date: 20120403
  Serious: Yes (Hospitalization)
  Sender: FDA-Public Use
  Company Number: PHHY2011CH89717

PATIENT
  Age: 76 Year
  Sex: Male

DRUGS (7)
  1. TACROLIMUS [Concomitant]
     Dosage: UNK UKN, UNK
  2. INFLIXIMAB [Concomitant]
     Dosage: 450 MG, UNK
     Route: 042
  3. CORTICOSTEROIDS [Concomitant]
     Dosage: UNK UKN, UNK
  4. CYCLOSPORINE [Suspect]
     Dosage: 4 MG/KG OF BODY WEIGHT
     Route: 048
  5. PREDNISONE [Concomitant]
     Dosage: 100 MG, UNK
  6. TRIAMCINOLONE ACETONIDE [Concomitant]
     Dosage: UNK UKN, UNK
  7. APLIGRAF [Concomitant]
     Dosage: UNK UKN, UNK

REACTIONS (4)
  - WOUND COMPLICATION [None]
  - SKIN ULCER [None]
  - CONDITION AGGRAVATED [None]
  - TUBERCULOSIS [None]
